FAERS Safety Report 23299353 (Version 1)
Quarter: 2023Q4

REPORT INFORMATION
  Report Type: Spontaneous
  Country: IT (occurrence: IT)
  Receive Date: 20231215
  Receipt Date: 20231215
  Transmission Date: 20240109
  Serious: Yes (Other)
  Sender: FDA-Public Use
  Company Number: IT-ELI_LILLY_AND_COMPANY-IT202312005685

PATIENT
  Age: 53 Year
  Sex: Female

DRUGS (1)
  1. SELPERCATINIB [Suspect]
     Active Substance: SELPERCATINIB
     Indication: Non-small cell lung cancer
     Dosage: 160 MG, BID
     Route: 048
     Dates: start: 202304

REACTIONS (9)
  - Superior sagittal sinus thrombosis [Recovering/Resolving]
  - Visual impairment [Unknown]
  - Alanine aminotransferase increased [Unknown]
  - Aspartate aminotransferase increased [Unknown]
  - Nausea [Unknown]
  - Oedema peripheral [Unknown]
  - Headache [Unknown]
  - Vomiting [Unknown]
  - Therapy partial responder [Unknown]
